FAERS Safety Report 12226630 (Version 1)
Quarter: 2016Q1

REPORT INFORMATION
  Report Type: Spontaneous
  Country: US (occurrence: US)
  Receive Date: 20160331
  Receipt Date: 20160331
  Transmission Date: 20160526
  Serious: No
  Sender: FDA-Public Use
  Company Number: US-SHIRE-US201603815

PATIENT
  Age: 6 Year
  Sex: Male
  Weight: 24.94 kg

DRUGS (1)
  1. VYVANSE [Suspect]
     Active Substance: LISDEXAMFETAMINE DIMESYLATE
     Indication: DISTURBANCE IN ATTENTION
     Dosage: 20 MG, 1X/DAY:QD (MONDAY-FRIDAY)
     Route: 048
     Dates: start: 201510

REACTIONS (2)
  - Abnormal behaviour [Recovering/Resolving]
  - Product quality issue [Unknown]

NARRATIVE: CASE EVENT DATE: 201603
